FAERS Safety Report 18766483 (Version 1)
Quarter: 2021Q1

REPORT INFORMATION
  Report Type: Other
  Country: QA (occurrence: QA)
  Receive Date: 20210121
  Receipt Date: 20210121
  Transmission Date: 20210419
  Serious: Yes (Hospitalization)
  Sender: FDA-Public Use
  Company Number: QA-ORCHID HEALTHCARE-2105635

PATIENT
  Age: 58 Year
  Sex: Female

DRUGS (1)
  1. ZOLMIPTRIPTAN [Suspect]
     Active Substance: ZOLMITRIPTAN
     Indication: MIGRAINE
     Route: 065

REACTIONS (1)
  - Renal infarct [Recovering/Resolving]
